FAERS Safety Report 6334561-2 (Version None)
Quarter: 2009Q3

REPORT INFORMATION
  Report Type: 
  Country: None (occurrence: None)
  Receive Date: 20090831
  Receipt Date: 20090821
  Transmission Date: 20100115
  Serious: Yes (Hospitalization)
  Sender: FDA-Public Use
  Company Number: PHHY2009JP18618

PATIENT
  Sex: Female
  Weight: 52 kg

DRUGS (2)
  1. NEORAL [Suspect]
     Indication: PUSTULAR PSORIASIS
     Dosage: 300 MG/DAY
     Route: 048
     Dates: start: 20081101, end: 20081217
  2. DRUG THERAPY NOS [Concomitant]
     Dosage: UNK
     Dates: end: 20090101

REACTIONS (4)
  - DYSPNOEA [None]
  - INTERSTITIAL LUNG DISEASE [None]
  - LYMPHOCYTE STIMULATION TEST POSITIVE [None]
  - ORGANISING PNEUMONIA [None]
